FAERS Safety Report 18565687 (Version 1)
Quarter: 2020Q4

REPORT INFORMATION
  Report Type: Spontaneous
  Country: UA (occurrence: UA)
  Receive Date: 20201201
  Receipt Date: 20201201
  Transmission Date: 20210114
  Serious: Yes (Other)
  Sender: FDA-Public Use
  Company Number: UA-AMNEAL PHARMACEUTICALS-2020-AMRX-03731

PATIENT
  Age: 13 Year
  Sex: Male

DRUGS (1)
  1. DOXYCYCLINE HYCLATE DELAYED RELEASE [Suspect]
     Active Substance: DOXYCYCLINE HYCLATE
     Indication: LYME DISEASE
     Dosage: 100 MILLIGRAM, 2 /DAY
     Route: 048

REACTIONS (1)
  - Jarisch-Herxheimer reaction [Recovering/Resolving]
